FAERS Safety Report 6687450-8 (Version None)
Quarter: 2010Q2

REPORT INFORMATION
  Report Type: 
  Country: None (occurrence: None)
  Receive Date: 20100419
  Receipt Date: 20100412
  Transmission Date: 20101027
  Serious: Yes (Other)
  Sender: FDA-Public Use
  Company Number: PHHY2010US23001

PATIENT
  Sex: Female

DRUGS (12)
  1. FEMARA [Suspect]
     Dosage: UNK
  2. VASOTEC [Concomitant]
     Dosage: 20 MG, BID
  3. LIPITOR [Concomitant]
     Dosage: 20 MG, QD
  4. NORVASC [Concomitant]
     Dosage: 10 MG, QD
  5. GLIPIZIDE [Concomitant]
     Dosage: 10 MG, BID
  6. GLUCOPHAGE [Concomitant]
     Dosage: 1000 MG, BID
  7. ARTHROTEC [Concomitant]
     Dosage: 75 MG, BID
  8. TYLENOL (CAPLET) [Concomitant]
     Dosage: UNK
  9. ASPIRIN [Concomitant]
     Dosage: 325 MG, QD
  10. CALCIUM 1200 [Concomitant]
     Dosage: UNK
  11. VITAMIN D [Concomitant]
     Dosage: 400 UNIT; UNK
  12. TOVIAZ [Concomitant]
     Dosage: 4 MG, BID

REACTIONS (1)
  - THINKING ABNORMAL [None]
